FAERS Safety Report 19478598 (Version 2)
Quarter: 2021Q3

REPORT INFORMATION
  Report Type: Spontaneous
  Country: JP (occurrence: JP)
  Receive Date: 20210630
  Receipt Date: 20210720
  Transmission Date: 20211014
  Serious: Yes (Hospitalization)
  Sender: FDA-Public Use
  Company Number: JP-DSJP-DSJ-2021-119603

PATIENT
  Age: 73 Year
  Sex: Male

DRUGS (3)
  1. DABIGATRAN                         /01633202/ [Suspect]
     Active Substance: DABIGATRAN
     Dosage: UNK
     Route: 048
  2. ASPIRIN                            /00002701/ [Concomitant]
     Active Substance: ASPIRIN
     Dosage: UNK
     Route: 048
  3. EFIENT [Suspect]
     Active Substance: PRASUGREL HYDROCHLORIDE
     Indication: CORONARY ARTERY DISEASE
     Dosage: UNK, QD
     Route: 048

REACTIONS (4)
  - Microcytic anaemia [Recovering/Resolving]
  - Occult blood [Recovering/Resolving]
  - Oesophageal ulcer [Recovering/Resolving]
  - Colon adenoma [Unknown]
